FAERS Safety Report 4450145-5 (Version None)
Quarter: 2004Q3

REPORT INFORMATION
  Report Type: 
  Country: None (occurrence: None)
  Receive Date: 20040915
  Receipt Date: 20040903
  Transmission Date: 20050211
  Serious: Yes (Hospitalization)
  Sender: FDA-Public Use
  Company Number: GB-BRISTOL-MYERS SQUIBB COMPANY-12693206

PATIENT
  Age: 48 Year
  Sex: Female

DRUGS (4)
  1. KENALOG-40 [Suspect]
     Indication: NECK PAIN
     Route: 037
     Dates: start: 20040903
  2. TRAMADOL HCL [Concomitant]
  3. DICLOFENAC [Concomitant]
  4. THYROXINE [Concomitant]

REACTIONS (2)
  - MEDICATION ERROR [None]
  - RESPIRATORY ARREST [None]
